FAERS Safety Report 16235003 (Version 4)
Quarter: 2020Q1

REPORT INFORMATION
  Report Type: Report from Study
  Country: US (occurrence: US)
  Receive Date: 20190424
  Receipt Date: 20200102
  Transmission Date: 20200409
  Serious: Yes (Hospitalization)
  Sender: FDA-Public Use
  Company Number: US-ACTELION-A-NJ2019-189229

PATIENT
  Sex: Male

DRUGS (1)
  1. OPSUMIT [Suspect]
     Active Substance: MACITENTAN
     Indication: PULMONARY ARTERIAL HYPERTENSION
     Dosage: 10 MG
     Route: 048
     Dates: start: 20190430

REACTIONS (7)
  - Chest pain [Unknown]
  - Dyspnoea exertional [Unknown]
  - Product dose omission [Unknown]
  - Dyspnoea [Unknown]
  - Peripheral swelling [Unknown]
  - Hospitalisation [Unknown]
  - Surgery [Unknown]
